FAERS Safety Report 15952157 (Version 1)
Quarter: 2019Q1

REPORT INFORMATION
  Report Type: Spontaneous
  Country: US (occurrence: US)
  Receive Date: 20190212
  Receipt Date: 20190212
  Transmission Date: 20190417
  Serious: No
  Sender: FDA-Public Use
  Company Number: US-SA-2019SA038115

PATIENT
  Sex: Female

DRUGS (3)
  1. DUPIXENT [Suspect]
     Active Substance: DUPILUMAB
     Indication: DERMATITIS ATOPIC
     Dosage: 300 MG, QOW
     Route: 058
  2. PREDNISONE. [Concomitant]
     Active Substance: PREDNISONE
     Dosage: 5 MG, QD
     Route: 048
  3. MUCINEX [Concomitant]
     Active Substance: GUAIFENESIN
     Dosage: UNK UNK, PRN

REACTIONS (2)
  - Wheezing [Unknown]
  - Dyspnoea [Unknown]
